FAERS Safety Report 10101722 (Version 1)
Quarter: 2014Q2

REPORT INFORMATION
  Report Type: Spontaneous
  Country: DE (occurrence: None)
  Receive Date: 20140421
  Receipt Date: 20140421
  Transmission Date: 20141212
  Serious: Yes (Other)
  Sender: FDA-Public Use
  Company Number: 7281108

PATIENT
  Age: 79 Year
  Sex: Female

DRUGS (6)
  1. DIGIMERCK [Suspect]
     Indication: ATRIAL FIBRILLATION
     Route: 048
     Dates: end: 201403
  2. DIGIMERCK [Suspect]
     Indication: PALPITATIONS
     Route: 048
     Dates: end: 201403
  3. DIGIMERCK [Suspect]
     Indication: TACHYCARDIA
     Route: 048
     Dates: end: 201403
  4. LEVOTHYROXINE SODIUM [Suspect]
     Indication: PRODUCT USED FOR UNKNOWN INDICATION
  5. TENORMIN, ATENOLOL [Suspect]
     Indication: PRODUCT USED FOR UNKNOWN INDICATION
     Dosage: (50 MG), ORAL YEARS AGO
     Route: 048
  6. PRADAXA [Suspect]
     Indication: CARDIOVASCULAR EVENT PROPHYLAXIS
     Dosage: (110 MG), ORAL
     Route: 048
     Dates: start: 201402

REACTIONS (17)
  - Blood pressure diastolic increased [None]
  - Altered state of consciousness [None]
  - Feeling cold [None]
  - Feeling abnormal [None]
  - Visual impairment [None]
  - Abdominal discomfort [None]
  - Musculoskeletal stiffness [None]
  - Musculoskeletal stiffness [None]
  - Flatulence [None]
  - Gamma-glutamyltransferase increased [None]
  - Aspartate aminotransferase increased [None]
  - Alanine aminotransferase increased [None]
  - Asthenia [None]
  - Drug interaction [None]
  - Blood pressure inadequately controlled [None]
  - Nasal disorder [None]
  - Erythema [None]
